FAERS Safety Report 24149817 (Version 1)
Quarter: 2024Q3

REPORT INFORMATION
  Report Type: Spontaneous
  Country: MY (occurrence: MY)
  Receive Date: 20240730
  Receipt Date: 20240730
  Transmission Date: 20241016
  Serious: No
  Sender: ALKEM
  Company Number: MY-ALKEM LABORATORIES LIMITED-MY-ALKEM-2024-05382

PATIENT
  Age: 61 Year
  Sex: Male

DRUGS (2)
  1. CEFUROXIME AXETIL [Suspect]
     Active Substance: CEFUROXIME AXETIL
     Indication: Lip ulceration
     Dosage: 250 MILLIGRAM, BID
     Route: 048
  2. FUCIDIN [Suspect]
     Active Substance: FUSIDATE SODIUM
     Indication: Lip ulceration
     Dosage: UNK
     Route: 061

REACTIONS (1)
  - Drug ineffective [Unknown]
